FAERS Safety Report 22534876 (Version 1)
Quarter: 2023Q2

REPORT INFORMATION
  Report Type: Spontaneous
  Country: HR (occurrence: HR)
  Receive Date: 20230608
  Receipt Date: 20230608
  Transmission Date: 20230721
  Serious: Yes (Death, Other)
  Sender: FDA-Public Use
  Company Number: HR-JNJFOC-20230610600

PATIENT

DRUGS (1)
  1. IMBRUVICA [Suspect]
     Active Substance: IBRUTINIB
     Indication: Product used for unknown indication
     Route: 048

REACTIONS (18)
  - Cardiac failure [Fatal]
  - Angina pectoris [Unknown]
  - Haemorrhage [Unknown]
  - COVID-19 [Fatal]
  - Myelosuppression [Unknown]
  - Ventricular fibrillation [Fatal]
  - Richter^s syndrome [Fatal]
  - Asthenia [Unknown]
  - Atrial fibrillation [Unknown]
  - Arthralgia [Unknown]
  - Nephropathy toxic [Unknown]
  - Post procedural complication [Fatal]
  - Pneumonia bacterial [Fatal]
  - Hepatic lesion [Unknown]
  - Cardiac tamponade [Fatal]
  - Hypertension [Unknown]
  - Sepsis [Fatal]
  - Disease progression [Fatal]
